FAERS Safety Report 9643254 (Version 2)
Quarter: 2014Q1

REPORT INFORMATION
  Report Type: Spontaneous
  Country: US (occurrence: None)
  Receive Date: 20131022
  Receipt Date: 20140127
  Transmission Date: 20141002
  Serious: Yes (Hospitalization, Other)
  Sender: FDA-Public Use
  Company Number: QSC-2013-0373

PATIENT
  Age: 6 Month
  Sex: Female

DRUGS (6)
  1. H.P.ACTHAR [Suspect]
     Indication: INFANTILE SPASMS
     Dosage: UNK
     Dates: start: 20121009, end: 20121115
  2. VIGABATRIN (VIGABATRIN) [Concomitant]
  3. DIFLUCAN (FLUCONAZOLE) [Concomitant]
  4. OMNICEF (CEFDINIR) [Concomitant]
  5. ZANTAC (RANITIDINE HYDROCHLORIDE) [Concomitant]
  6. KLONOPIN (CLONAZEPAM) (TABLETS) [Concomitant]

REACTIONS (1)
  - Cardiomyopathy [None]
